FAERS Safety Report 15633606 (Version 2)
Quarter: 2019Q1

REPORT INFORMATION
  Report Type: Report from Study
  Country: US (occurrence: US)
  Receive Date: 20181119
  Receipt Date: 20190226
  Transmission Date: 20190417
  Serious: Yes (Hospitalization)
  Sender: FDA-Public Use
  Company Number: US-GILEAD-2018-0375027

PATIENT
  Age: 65 Year
  Sex: Male

DRUGS (25)
  1. ALLOPURINOL. [Concomitant]
     Active Substance: ALLOPURINOL
  2. PRAVASTATIN. [Concomitant]
     Active Substance: PRAVASTATIN
  3. AZTREONAM LYSINE [Suspect]
     Active Substance: AZTREONAM LYSINE
     Indication: IDIOPATHIC PULMONARY FIBROSIS
     Dosage: 75 MG, TID; 28 DAYS ON AND 28 DAYS OFF
     Route: 055
     Dates: start: 201811
  4. ABELCET [Concomitant]
     Active Substance: AMPHOTERICIN B\DIMYRISTOYLPHOSPHATIDYLCHOLINE, DL-\DIMYRISTOYLPHOSPHATIDYLGLYCEROL, DL-
  5. CITALOPRAM [Concomitant]
     Active Substance: CITALOPRAM HYDROBROMIDE
  6. DOXAZOSIN [Concomitant]
     Active Substance: DOXAZOSIN\DOXAZOSIN MESYLATE
  7. METOCLOPRAM [Concomitant]
     Active Substance: METOCLOPRAMIDE
  8. NOXAFIL [Concomitant]
     Active Substance: POSACONAZOLE
  9. ACYCLOVIR [ACICLOVIR] [Concomitant]
     Active Substance: ACYCLOVIR
  10. HUMULIN N [Concomitant]
     Active Substance: INSULIN HUMAN
  11. MAG OXIDE [Concomitant]
     Active Substance: MAGNESIUM OXIDE
  12. WARFARIN [Concomitant]
     Active Substance: WARFARIN
  13. FLOVENT [Concomitant]
     Active Substance: FLUTICASONE PROPIONATE
  14. MYCOPHENOLATE [Concomitant]
     Active Substance: MYCOPHENOLIC ACID
  15. AZTREONAM LYSINE [Suspect]
     Active Substance: AZTREONAM LYSINE
     Indication: LUNG TRANSPLANT
     Dosage: 75 MG, TID; 28 DAYS ON AND 28 DAYS OFF
     Route: 055
     Dates: start: 20170815, end: 201811
  16. FUROSEMIDE. [Concomitant]
     Active Substance: FUROSEMIDE
  17. OMEPRAZOLE. [Concomitant]
     Active Substance: OMEPRAZOLE
  18. TACROLIMUS. [Concomitant]
     Active Substance: TACROLIMUS
  19. ATOVAQUONE. [Concomitant]
     Active Substance: ATOVAQUONE
  20. METOPROLOL TARTRATE. [Concomitant]
     Active Substance: METOPROLOL TARTRATE
  21. NYSTATIN. [Concomitant]
     Active Substance: NYSTATIN
  22. FERROUS GLUCONATE [Concomitant]
     Active Substance: FERROUS GLUCONATE
  23. FREESTYLE [Concomitant]
  24. PREDNISONE. [Concomitant]
     Active Substance: PREDNISONE
  25. TERBINAFINE. [Concomitant]
     Active Substance: TERBINAFINE

REACTIONS (4)
  - Product dose omission [Recovered/Resolved]
  - Off label use [Not Recovered/Not Resolved]
  - Post procedural complication [Unknown]
  - Infection [Unknown]

NARRATIVE: CASE EVENT DATE: 201811
